FAERS Safety Report 11891729 (Version 3)
Quarter: 2019Q1

REPORT INFORMATION
  Report Type: Spontaneous
  Country: US (occurrence: US)
  Receive Date: 20160106
  Receipt Date: 20190301
  Transmission Date: 20190417
  Serious: Yes (Other)
  Sender: FDA-Public Use
  Company Number: US-PFIZER INC-2016000723

PATIENT
  Age: 55 Year
  Sex: Female
  Weight: 99 kg

DRUGS (2)
  1. LYRICA [Suspect]
     Active Substance: PREGABALIN
     Dosage: 75 MG, 1X/DAY
  2. LYRICA [Suspect]
     Active Substance: PREGABALIN
     Indication: NEUROPATHY PERIPHERAL
     Dosage: 75 MG, 3X/DAY

REACTIONS (5)
  - Product use in unapproved indication [Unknown]
  - Brain injury [Unknown]
  - Amnesia [Unknown]
  - Intentional product misuse [Unknown]
  - Encephalitis [Unknown]

NARRATIVE: CASE EVENT DATE: 201901
